FAERS Safety Report 16208649 (Version 2)
Quarter: 2019Q2

REPORT INFORMATION
  Report Type: Spontaneous
  Country: NL (occurrence: DE)
  Receive Date: 20190417
  Receipt Date: 20190619
  Transmission Date: 20190711
  Serious: Yes (Death, Hospitalization, Other)
  Sender: FDA-Public Use
  Company Number: DE-FRESENIUS KABI-FK201904197

PATIENT
  Age: 74 Year
  Sex: Male

DRUGS (6)
  1. PEMBROLIZUMAB. [Suspect]
     Active Substance: PEMBROLIZUMAB
     Indication: LUNG ADENOCARCINOMA
     Dosage: 200 MILLIGRAM, CYCLICAL, 4 CYCLES WITH CONCOMITANT CARBOPLATIN AND PEMETREXED FOLLOWED BY 2 CYCLES C
     Route: 065
     Dates: start: 201811, end: 20190304
  2. CARBOPLATIN (MANUFACTURER UNKNOWN) [Suspect]
     Active Substance: CARBOPLATIN
     Indication: NON-SMALL CELL LUNG CANCER
  3. PEMETREXED DISODIUM [Suspect]
     Active Substance: PEMETREXED DISODIUM
     Indication: LUNG ADENOCARCINOMA
     Dosage: 4 CYCLES WITH COMBINATION OF PEMBROLIZUMAB(KEYTRUDA), CARBOPLATIN AND PEMETREXED DISODIUM?4 CYCLES C
     Route: 065
     Dates: start: 201811, end: 20190304
  4. PEMETREXED DISODIUM [Suspect]
     Active Substance: PEMETREXED DISODIUM
     Indication: NON-SMALL CELL LUNG CANCER
  5. CARBOPLATIN (MANUFACTURER UNKNOWN) [Suspect]
     Active Substance: CARBOPLATIN
     Indication: LUNG ADENOCARCINOMA
     Dosage: 4 CYCLES WITH COMBINATION OF PEMBROLIZUMAB (KEYTRUDA), CARBOPLATIN AND PEMETREXED DISODIUM/AUC 5
     Route: 065
     Dates: start: 201811
  6. PEMBROLIZUMAB. [Suspect]
     Active Substance: PEMBROLIZUMAB
     Indication: NON-SMALL CELL LUNG CANCER

REACTIONS (10)
  - Staphylococcus test positive [Fatal]
  - Pyrexia [Fatal]
  - Interstitial lung disease [Fatal]
  - Malignant neoplasm progression [Fatal]
  - Cerebral artery thrombosis [Fatal]
  - Brain oedema [Fatal]
  - Idiopathic pulmonary fibrosis [Fatal]
  - Subendocardial ischaemia [Fatal]
  - Arteriosclerosis [Fatal]
  - Interstitial lung disease [Fatal]

NARRATIVE: CASE EVENT DATE: 201903
